FAERS Safety Report 6024304-4 (Version None)
Quarter: 2008Q4

REPORT INFORMATION
  Report Type: 
  Country: None (occurrence: None)
  Receive Date: 20081231
  Receipt Date: 20081218
  Transmission Date: 20090506
  Serious: Yes (Hospitalization, Other)
  Sender: FDA-Public Use
  Company Number: US-PFIZER INC-2008159253

PATIENT
  Sex: Female
  Weight: 54.431 kg

DRUGS (2)
  1. ANTIVERT [Suspect]
     Indication: VERTIGO
  2. MECLIZINE HCL [Suspect]
     Indication: VERTIGO

REACTIONS (10)
  - CONVULSION [None]
  - DIABETES MELLITUS [None]
  - DYSARTHRIA [None]
  - DYSPNOEA [None]
  - EYELID PTOSIS [None]
  - MUSCLE TWITCHING [None]
  - OEDEMA PERIPHERAL [None]
  - PANCREATIC DISORDER [None]
  - PELVIC FRACTURE [None]
  - WEIGHT DECREASED [None]
